FAERS Safety Report 7377949-3 (Version None)
Quarter: 2011Q1

REPORT INFORMATION
  Report Type: 
  Country: None (occurrence: None)
  Receive Date: 20110328
  Receipt Date: 20110316
  Transmission Date: 20110831
  Serious: Yes (Life-Threatening, Other)
  Sender: FDA-Public Use
  Company Number: FR-PFIZER INC-2011066738

PATIENT
  Age: 62 Year
  Sex: Male

DRUGS (10)
  1. SIMVASTATIN [Concomitant]
     Dosage: 40 MG, UNK
  2. SERETIDE [Concomitant]
  3. SEROPLEX [Concomitant]
  4. SEVIKAR [Suspect]
     Dosage: 10/40 MG/DAY
     Route: 048
     Dates: start: 20100101, end: 20110117
  5. MEPRONIZINE [Concomitant]
  6. ATENOLOL [Concomitant]
     Dosage: 100 MG, UNK
  7. NEXIUM [Concomitant]
     Dosage: 20 MG, UNK
  8. ALDACTONE [Suspect]
     Dosage: 75 MG, UNK
     Route: 048
     Dates: end: 20110117
  9. SALBUTAMOL [Concomitant]
  10. IPRATROPIUM [Concomitant]

REACTIONS (4)
  - RENAL FAILURE ACUTE [None]
  - HYPERKALAEMIA [None]
  - CARDIO-RESPIRATORY ARREST [None]
  - GASTROENTERITIS [None]
